FAERS Safety Report 5035260-X (Version None)
Quarter: 2006Q2

REPORT INFORMATION
  Report Type: 
  Country: None (occurrence: None)
  Receive Date: 20060519
  Receipt Date: 20060314
  Transmission Date: 20061013
  Serious: No
  Sender: FDA-Public Use
  Company Number: TPA2006A00441

PATIENT
  Age: 44 Year
  Sex: Female
  Weight: 81.6475 kg

DRUGS (4)
  1. ROZEREM [Suspect]
     Indication: INSOMNIA
     Dosage: 8 MG, HS, PER ORAL
     Route: 048
     Dates: start: 20051201
  2. KLONOPIN (CLONAZEPAM) (1 MILLIGRAM) [Concomitant]
  3. AMITRIPTYLINE (AMITRIPTYLINE) (50 MILLIGRAM) [Concomitant]
  4. GABAPENTIN (GABAPENTIN) (600 MILLIGRAM) [Concomitant]

REACTIONS (1)
  - ABNORMAL DREAMS [None]
